FAERS Safety Report 10013733 (Version 4)
Quarter: 2015Q1

REPORT INFORMATION
  Report Type: Spontaneous
  Country: US (occurrence: US)
  Receive Date: 20140316
  Receipt Date: 20150225
  Transmission Date: 20150720
  Serious: Yes (Hospitalization)
  Sender: FDA-Public Use
  Company Number: US-BAYER-2014-038701

PATIENT
  Age: 24 Year
  Sex: Female
  Weight: 68.27 kg

DRUGS (4)
  1. IBUPROFEN. [Concomitant]
     Active Substance: IBUPROFEN
  2. DEPO-PROVERA [Concomitant]
     Active Substance: MEDROXYPROGESTERONE ACETATE
  3. MIRENA [Suspect]
     Active Substance: LEVONORGESTREL
     Indication: CONTRACEPTION
     Dosage: 20 MCG/24HR, CONT
     Route: 015
     Dates: start: 20100528, end: 20100709
  4. ZOLOFT [Concomitant]
     Active Substance: SERTRALINE HYDROCHLORIDE

REACTIONS (8)
  - Medical device discomfort [None]
  - Device dislocation [None]
  - Pain [None]
  - Device difficult to use [None]
  - Device defective [None]
  - Abdominal pain [None]
  - Uterine perforation [None]
  - Injury [None]

NARRATIVE: CASE EVENT DATE: 201005
